FAERS Safety Report 16721608 (Version 1)
Quarter: 2019Q3

REPORT INFORMATION
  Report Type: Spontaneous
  Country: JP (occurrence: JP)
  Receive Date: 20190820
  Receipt Date: 20190820
  Transmission Date: 20191005
  Serious: Yes (Other)
  Sender: FDA-Public Use
  Company Number: JP-PFIZER INC-2019350439

PATIENT
  Age: 9 Decade

DRUGS (1)
  1. SOLU-CORTEF [Suspect]
     Active Substance: HYDROCORTISONE SODIUM SUCCINATE
     Indication: ADRENAL INSUFFICIENCY
     Dosage: 200 MG, DAILY

REACTIONS (3)
  - Shock [Unknown]
  - Blood glucose increased [Unknown]
  - Blood glucose decreased [Unknown]
